FAERS Safety Report 25234398 (Version 3)
Quarter: 2025Q2

REPORT INFORMATION
  Report Type: Spontaneous
  Country: US (occurrence: US)
  Receive Date: 20250424
  Receipt Date: 20250528
  Transmission Date: 20250717
  Serious: No
  Sender: PFIZER
  Company Number: US-PFIZER INC-202500059433

PATIENT
  Age: 11 Year
  Sex: Male

DRUGS (2)
  1. GENOTROPIN [Suspect]
     Active Substance: SOMATROPIN
     Indication: Small for dates baby
     Dosage: 1.8 MG, DAILY (1.8MG UNDER SKIN, ONE TIME A DAY)
  2. GENOTROPIN [Suspect]
     Active Substance: SOMATROPIN
     Indication: Short stature

REACTIONS (1)
  - No adverse event [Unknown]
